FAERS Safety Report 8243607-6 (Version None)
Quarter: 2012Q1

REPORT INFORMATION
  Report Type: 
  Country: None (occurrence: None)
  Receive Date: 20120329
  Receipt Date: 20120321
  Transmission Date: 20120608
  Serious: Yes (Hospitalization)
  Sender: FDA-Public Use
  Company Number: US-BAYER-2011-114240

PATIENT
  Age: 32 Year
  Sex: Female
  Weight: 68.934 kg

DRUGS (24)
  1. FISH OIL [Concomitant]
     Dosage: UNK UNK, ONCE
     Route: 048
  2. METFORMIN HCL [Concomitant]
     Dosage: 500 MG, QID
     Route: 048
     Dates: start: 20090807, end: 20101018
  3. ZINC SULFATE [Concomitant]
     Route: 048
  4. MULTI-VITAMINS [Concomitant]
     Dosage: UNK, ONCE
     Route: 048
  5. VITAMIN B COMPLEX CAP [Concomitant]
     Route: 048
  6. PROMETHAZINE [Concomitant]
     Dosage: 25 MG, UNK
     Route: 048
  7. OMEPRAZOLE [Concomitant]
     Dosage: UNK
     Route: 048
     Dates: start: 20090807, end: 20091130
  8. LORAZEPAM [Concomitant]
     Dosage: 0.5 MG, UNK
     Route: 048
  9. CYMBALTA [Concomitant]
     Dosage: 60 MG, UNK
     Route: 048
  10. ANTACIDS [Concomitant]
     Route: 048
  11. DEPAKOTE [Concomitant]
     Dosage: 500 MG, TID
     Route: 048
  12. NEXIUM [Concomitant]
     Dosage: 40 MG, QD
     Route: 048
  13. TRI-SPRINTEC [Concomitant]
     Indication: CONTRACEPTION
     Dosage: UNK
     Dates: start: 20091014, end: 20101019
  14. YAZ [Suspect]
     Indication: CONTRACEPTION
     Dosage: UNK
     Dates: start: 20090817, end: 20091001
  15. THYROID TAB [Concomitant]
     Dosage: UNK
     Route: 048
     Dates: start: 20090529, end: 20091021
  16. FOLIC ACID [Concomitant]
     Route: 048
  17. PROPO-N/APAP [Concomitant]
     Route: 048
  18. PEPCID [Concomitant]
     Dosage: 20 MG, TID
  19. ORTHO TRI-CYCLEN LO [Concomitant]
     Dosage: UNK UNK, QD
     Route: 048
  20. PRENATAL [Concomitant]
     Route: 048
  21. LEVOTHYROXINE SODIUM [Concomitant]
     Dosage: 0.05 MG, UNK
     Route: 048
  22. HYDROCODONE [Concomitant]
     Route: 048
  23. CIPROFLOXACIN [Concomitant]
     Dosage: 500 MG, UNK
     Route: 048
  24. SYNTHROID [Concomitant]
     Dosage: 25 MCG/24HR, QD
     Route: 048

REACTIONS (5)
  - PAIN [None]
  - ABDOMINAL PAIN [None]
  - CHOLECYSTITIS CHRONIC [None]
  - CHOLELITHIASIS [None]
  - ABDOMINAL PAIN UPPER [None]
